FAERS Safety Report 13640533 (Version 1)
Quarter: 2017Q2

REPORT INFORMATION
  Report Type: Report from Study
  Country: MA (occurrence: MA)
  Receive Date: 20170611
  Receipt Date: 20170611
  Transmission Date: 20170830
  Serious: Yes (Life-Threatening, Other)
  Sender: FDA-Public Use
  Company Number: MA-AMGEN-MARNI2017087571

PATIENT
  Age: 75 Year
  Sex: Female
  Weight: 74 kg

DRUGS (6)
  1. AMLODIPINE [Concomitant]
     Active Substance: AMLODIPINE BESYLATE
     Indication: PRODUCT USED FOR UNKNOWN INDICATION
     Dosage: 5 MG DAILY
  2. ATENOLOL. [Concomitant]
     Active Substance: ATENOLOL
     Indication: PRODUCT USED FOR UNKNOWN INDICATION
     Dosage: 100 MG DAILY
  3. ANGIOTENSIN II [Concomitant]
     Active Substance: ANGIOTENSIN II
     Indication: PRODUCT USED FOR UNKNOWN INDICATION
     Dosage: UNK
  4. TELMISARTAN. [Concomitant]
     Active Substance: TELMISARTAN
     Indication: PRODUCT USED FOR UNKNOWN INDICATION
     Dosage: UNK
  5. IVABRADINE [Suspect]
     Active Substance: IVABRADINE
     Indication: CARDIAC FAILURE
     Dosage: UNK
     Route: 065
     Dates: end: 20160808
  6. IVABRADINE [Suspect]
     Active Substance: IVABRADINE
     Indication: CORONARY ARTERY DISEASE

REACTIONS (3)
  - Bradycardia [Unknown]
  - Product use issue [Unknown]
  - Malaise [Unknown]

NARRATIVE: CASE EVENT DATE: 2017
